FAERS Safety Report 11825585 (Version 1)
Quarter: 2015Q4

REPORT INFORMATION
  Report Type: Spontaneous
  Country: US (occurrence: US)
  Receive Date: 20151211
  Receipt Date: 20151211
  Transmission Date: 20160305
  Serious: No
  Sender: FDA-Public Use
  Company Number: US-JNJFOC-20150716870

PATIENT
  Age: 80 Year
  Sex: Female
  Weight: 100 kg

DRUGS (12)
  1. PROTONIX [Concomitant]
     Active Substance: PANTOPRAZOLE SODIUM
  2. OXYBUTYNIN [Concomitant]
     Active Substance: OXYBUTYNIN
  3. ZOCOR [Concomitant]
     Active Substance: SIMVASTATIN
  4. XARELTO [Concomitant]
     Active Substance: RIVAROXABAN
  5. EFFEXOR [Concomitant]
     Active Substance: VENLAFAXINE HYDROCHLORIDE
  6. ASA [Concomitant]
     Active Substance: ASPIRIN
  7. MVI [Concomitant]
     Active Substance: VITAMINS
  8. CALCIUM 500 + D [Concomitant]
     Active Substance: CALCIUM\VITAMIN D
  9. B COMPLEX/00322001/ [Concomitant]
  10. VITAMIN C [Concomitant]
     Active Substance: ASCORBIC ACID
  11. LISINOPRIL. [Concomitant]
     Active Substance: LISINOPRIL
  12. IMBRUVICA [Suspect]
     Active Substance: IBRUTINIB
     Indication: CHRONIC LYMPHOCYTIC LEUKAEMIA
     Route: 048
     Dates: start: 201408

REACTIONS (2)
  - Tinnitus [Recovering/Resolving]
  - Ear pain [Unknown]

NARRATIVE: CASE EVENT DATE: 201504
